FAERS Safety Report 26173737 (Version 1)
Quarter: 2025Q4

REPORT INFORMATION
  Report Type: Report from Study
  Country: US (occurrence: US)
  Receive Date: 20251218
  Receipt Date: 20251218
  Transmission Date: 20260118
  Serious: Yes (Other)
  Sender: TAKEDA
  Company Number: US-TAKEDA-2025TUS113887

PATIENT
  Age: 71 Year
  Sex: Female

DRUGS (1)
  1. VEDOLIZUMAB [Suspect]
     Active Substance: VEDOLIZUMAB
     Indication: Product used for unknown indication
     Dosage: UNK

REACTIONS (8)
  - Colitis ulcerative [Unknown]
  - Coeliac disease [Unknown]
  - Large intestine polyp [Unknown]
  - Weight decreased [Unknown]
  - Diarrhoea infectious [Unknown]
  - Urinary tract infection [Unknown]
  - Haemorrhoids [Unknown]
  - Rash [Unknown]
